FAERS Safety Report 7890034-7 (Version None)
Quarter: 2011Q4

REPORT INFORMATION
  Report Type: 
  Country: None (occurrence: None)
  Receive Date: 20111103
  Receipt Date: 20111028
  Transmission Date: 20120403
  Serious: Yes (Other)
  Sender: FDA-Public Use
  Company Number: PHEH2010US03423

PATIENT
  Sex: Female

DRUGS (11)
  1. ATIVAN [Concomitant]
  2. AVASTIN [Concomitant]
  3. NEULASTA [Concomitant]
  4. AREDIA [Suspect]
  5. ZOMETA [Suspect]
  6. ONDANSETRON [Concomitant]
  7. AMBIEN [Concomitant]
     Indication: SLEEP DISORDER
  8. SENNA [Concomitant]
  9. DEXAMETHASONE [Concomitant]
  10. HEPARIN SODIUM [Concomitant]
  11. RADIATION [Concomitant]

REACTIONS (48)
  - METASTASES TO CHEST WALL [None]
  - METASTASES TO PELVIS [None]
  - LUNG NEOPLASM [None]
  - OEDEMA PERIPHERAL [None]
  - DEAFNESS UNILATERAL [None]
  - METASTASES TO BONE [None]
  - PNEUMONIA [None]
  - FALL [None]
  - OBESITY [None]
  - LYMPHOEDEMA [None]
  - BREAST CANCER STAGE IV [None]
  - SOFT TISSUE INFLAMMATION [None]
  - INJURY [None]
  - BONE LESION [None]
  - MEMORY IMPAIRMENT [None]
  - CHEST WALL NECROSIS [None]
  - VISUAL ACUITY REDUCED [None]
  - EYELID PTOSIS [None]
  - SPLENOMEGALY [None]
  - METASTASES TO SPINE [None]
  - ANXIETY [None]
  - SKIN MASS [None]
  - DYSPNOEA EXERTIONAL [None]
  - RADIATION OESOPHAGITIS [None]
  - PLEURAL EFFUSION [None]
  - PAIN [None]
  - ASPARTATE AMINOTRANSFERASE INCREASED [None]
  - DEPRESSION [None]
  - SKIN DISORDER [None]
  - ORAL DISORDER [None]
  - SKIN HAEMORRHAGE [None]
  - METASTASES TO CENTRAL NERVOUS SYSTEM [None]
  - PINEAL GLAND CYST [None]
  - OSTEONECROSIS OF JAW [None]
  - DISABILITY [None]
  - ANHEDONIA [None]
  - DIZZINESS [None]
  - METASTASES TO SKIN [None]
  - OCULAR CANCER METASTATIC [None]
  - CONFUSIONAL STATE [None]
  - LETHARGY [None]
  - ANAEMIA [None]
  - BLOOD ALKALINE PHOSPHATASE INCREASED [None]
  - MUSCULAR WEAKNESS [None]
  - GAMMA-GLUTAMYLTRANSFERASE INCREASED [None]
  - FATIGUE [None]
  - DENTAL CARIES [None]
  - ALOPECIA [None]
